APPROVED DRUG PRODUCT: ERYTHROMYCIN AND BENZOYL PEROXIDE
Active Ingredient: BENZOYL PEROXIDE; ERYTHROMYCIN
Strength: 5%;3%
Dosage Form/Route: GEL;TOPICAL
Application: A065112 | Product #001
Applicant: ENCUBE ETHICALS PRIVATE LTD
Approved: Mar 29, 2004 | RLD: No | RS: No | Type: DISCN